FAERS Safety Report 9272952 (Version 2)
Quarter: 2013Q2

REPORT INFORMATION
  Report Type: Report from Study
  Country: US (occurrence: US)
  Receive Date: 20130506
  Receipt Date: 20130507
  Transmission Date: 20140414
  Serious: Yes (Hospitalization)
  Sender: FDA-Public Use
  Company Number: US-ABBOTT-13P-163-1083100-00

PATIENT
  Age: 64 Year
  Sex: Female

DRUGS (9)
  1. HUMIRA [Suspect]
     Indication: CROHN^S DISEASE
     Route: 058
     Dates: start: 20111214, end: 20111214
  2. HUMIRA [Suspect]
     Dates: start: 20111228, end: 20111228
  3. HUMIRA [Suspect]
     Route: 058
     Dates: start: 20120112, end: 20130408
  4. CRESTOR [Concomitant]
     Indication: BLOOD CHOLESTEROL INCREASED
     Dosage: EVERY PM
  5. CITALOPRAM [Concomitant]
     Indication: DEPRESSION
     Route: 048
  6. VITAMIN D NOS [Concomitant]
     Indication: HYPOVITAMINOSIS
     Route: 048
  7. ALPRAZOLAM [Concomitant]
     Indication: NERVOUSNESS
     Route: 048
  8. FOLIC ACID [Concomitant]
     Indication: MINERAL SUPPLEMENTATION
     Route: 048
  9. CLOPIDOGREL BISULFATE [Concomitant]
     Indication: THROMBOSIS PROPHYLAXIS
     Route: 048

REACTIONS (4)
  - Chronic obstructive pulmonary disease [Recovering/Resolving]
  - Productive cough [Recovering/Resolving]
  - Activities of daily living impaired [Recovering/Resolving]
  - Hiatus hernia [Unknown]
